FAERS Safety Report 19587775 (Version 1)
Quarter: 2021Q3

REPORT INFORMATION
  Report Type: Spontaneous
  Country: US (occurrence: US)
  Receive Date: 20210721
  Receipt Date: 20210721
  Transmission Date: 20211014
  Serious: No
  Sender: FDA-Public Use
  Company Number: None

PATIENT
  Age: 77 Year
  Sex: Female
  Weight: 82.7 kg

DRUGS (2)
  1. NILOTINIB (TASIGNA) [Concomitant]
  2. TASIGNA [Suspect]
     Active Substance: NILOTINIB
     Route: 048

REACTIONS (1)
  - Peripheral vascular disorder [None]

NARRATIVE: CASE EVENT DATE: 20210721
